FAERS Safety Report 14763781 (Version 1)
Quarter: 2018Q2

REPORT INFORMATION
  Report Type: Spontaneous
  Country: FR (occurrence: FR)
  Receive Date: 20180416
  Receipt Date: 20180416
  Transmission Date: 20180711
  Serious: Yes (Hospitalization, Other)
  Sender: FDA-Public Use
  Company Number: FR-ROCHE-2102906

PATIENT
  Age: 26 Year
  Sex: Female

DRUGS (5)
  1. NORCURON [Suspect]
     Active Substance: VECURONIUM BROMIDE
     Indication: GENERAL ANAESTHESIA
     Route: 042
     Dates: start: 1992, end: 1992
  2. FENTANYL. [Suspect]
     Active Substance: FENTANYL
     Indication: GENERAL ANAESTHESIA
     Route: 042
     Dates: start: 1992, end: 1992
  3. VALIUM [Suspect]
     Active Substance: DIAZEPAM
     Indication: ANAESTHETIC PREMEDICATION
     Route: 065
     Dates: start: 1992, end: 1992
  4. BRIETAL [Suspect]
     Active Substance: METHOHEXITAL SODIUM
     Indication: GENERAL ANAESTHESIA
     Route: 042
     Dates: start: 1992, end: 1992
  5. RAPIFEN (FRANCE) [Suspect]
     Active Substance: ALFENTANIL HYDROCHLORIDE
     Indication: GENERAL ANAESTHESIA
     Route: 042
     Dates: start: 1992, end: 1992

REACTIONS (3)
  - Maternal exposure during pregnancy [Unknown]
  - Ectopic pregnancy [Unknown]
  - Hypersensitivity [Recovered/Resolved]

NARRATIVE: CASE EVENT DATE: 1992
